FAERS Safety Report 9553111 (Version 1)
Quarter: 2013Q3

REPORT INFORMATION
  Report Type: Spontaneous
  Country: US (occurrence: None)
  Receive Date: 20130724
  Receipt Date: 20130724
  Transmission Date: 20140515
  Serious: Yes (Other)
  Sender: FDA-Public Use
  Company Number: PHEH2012US018658

PATIENT
  Age: 91 Year
  Sex: Female
  Weight: 44 kg

DRUGS (1)
  1. RECLAST [Suspect]
     Dosage: UNK, UNK, UNK, INTRAVENOUS
     Route: 042
     Dates: start: 20101020

REACTIONS (3)
  - Renal impairment [None]
  - High density lipoprotein increased [None]
  - Creatinine renal clearance decreased [None]
